FAERS Safety Report 8418680-2 (Version None)
Quarter: 2012Q2

REPORT INFORMATION
  Report Type: 
  Country: None (occurrence: None)
  Receive Date: 20120531
  Receipt Date: 20120524
  Transmission Date: 20120825
  Serious: Yes (Life-Threatening, Hospitalization)
  Sender: FDA-Public Use
  Company Number: DAV-AE-PYR-12-01

PATIENT
  Age: 8 Year
  Sex: Male

DRUGS (4)
  1. ETHAMBUTOL HYDROCHLORIDE [Concomitant]
  2. PYRAZINAMIDE [Suspect]
     Indication: TUBERCULOSIS
  3. STREPTOMYCIN [Concomitant]
  4. RIFAMPICIN [Concomitant]

REACTIONS (2)
  - CONDITION AGGRAVATED [None]
  - TUBERCULOMA OF CENTRAL NERVOUS SYSTEM [None]
